FAERS Safety Report 10910750 (Version 1)
Quarter: 2015Q1

REPORT INFORMATION
  Report Type: Spontaneous
  Country: US (occurrence: US)
  Receive Date: 20150312
  Receipt Date: 20150312
  Transmission Date: 20150721
  Serious: No
  Sender: FDA-Public Use
  Company Number: US-SA-2015SA014964

PATIENT
  Sex: Female

DRUGS (2)
  1. NASACORT ALLERGY 24HR [Suspect]
     Active Substance: TRIAMCINOLONE ACETONIDE
     Indication: NASOPHARYNGITIS
     Dosage: DOSAGE: 2 SPARAYS/ DAILY
     Route: 045
  2. NASACORT ALLERGY 24HR [Suspect]
     Active Substance: TRIAMCINOLONE ACETONIDE
     Indication: ANOSMIA
     Dosage: DOSAGE: 2 SPARAYS/ DAILY
     Route: 045

REACTIONS (1)
  - Drug ineffective [Unknown]
